FAERS Safety Report 20297656 (Version 1)
Quarter: 2022Q1

REPORT INFORMATION
  Report Type: Spontaneous
  Country: US (occurrence: None)
  Receive Date: 20220105
  Receipt Date: 20220105
  Transmission Date: 20220423
  Serious: No
  Sender: FDA-Public Use
  Company Number: US-ROCHE-2763169

PATIENT
  Sex: Female

DRUGS (2)
  1. ACTIVASE [Suspect]
     Active Substance: ALTEPLASE
     Indication: Breast cancer female
     Dosage: 1 EA OF 50 ML
     Route: 065
  2. ACTIVASE [Suspect]
     Active Substance: ALTEPLASE
     Dosage: 2 MG IN PORT-A-CATH FOR 30-60 MINUTES OR UNTIL BLOOD RETURN
     Route: 065

REACTIONS (3)
  - Off label use [Unknown]
  - Intentional product use issue [Unknown]
  - No adverse event [Unknown]
